FAERS Safety Report 6474495-6 (Version None)
Quarter: 2009Q4

REPORT INFORMATION
  Report Type: 
  Country: None (occurrence: None)
  Receive Date: 20091123
  Receipt Date: 20090831
  Transmission Date: 20100525
  Serious: No
  Sender: FDA-Public Use
  Company Number: 8051303

PATIENT
  Age: 58 Year
  Sex: Female
  Weight: 102.1 kg

DRUGS (25)
  1. CIMZIA [Suspect]
     Indication: CROHN'S DISEASE
     Dosage: 400 MG SC
     Route: 058
     Dates: start: 20090401
  2. ALLOPURINOL [Concomitant]
  3. ALPRAZOLAM [Concomitant]
  4. ATENOLOL [Concomitant]
  5. BENADRYL [Concomitant]
  6. BUPROPION HCL [Concomitant]
  7. CHOLESTYRAMINE POWDER [Concomitant]
  8. CIPRO [Concomitant]
  9. CLARITIN [Concomitant]
  10. VITAMIN B-12 [Concomitant]
  11. ENALAPRIL [Concomitant]
  12. NEXIUM [Concomitant]
  13. LOFIBRA [Concomitant]
  14. HYDROCHLOROTHIAZIDE [Concomitant]
  15. HYDROCODONE [Concomitant]
  16. CORTIFOAM [Concomitant]
  17. HUMALOG [Concomitant]
  18. HUMALOG [Concomitant]
  19. HUMULIN N [Concomitant]
  20. HUMULIN N [Concomitant]
  21. CANASA SUPPOSITORY [Concomitant]
  22. EYE DROPS [Concomitant]
  23. OXYCODONE [Concomitant]
  24. POTASSIUM [Concomitant]
  25. SIMVASTATIN [Concomitant]

REACTIONS (1)
  - INFLUENZA LIKE ILLNESS [None]
